FAERS Safety Report 7015455-6 (Version None)
Quarter: 2010Q3

REPORT INFORMATION
  Report Type: 
  Country: None (occurrence: None)
  Receive Date: 20100923
  Receipt Date: 20100915
  Transmission Date: 20110219
  Serious: Yes (Other)
  Sender: FDA-Public Use
  Company Number: TPH-00215

PATIENT
  Age: 37 Year
  Sex: Female

DRUGS (4)
  1. TRIQUILAR (LOT NUMBER BS002FW) [Suspect]
     Indication: CONTRACEPTION
     Dosage: ORAL
     Route: 048
     Dates: start: 19990101, end: 20090701
  2. TRIQUILAR (LOT NUMBER BS002LU) [Suspect]
  3. CLARITIN-D [Concomitant]
  4. HYOSCINE HBR HYT [Concomitant]

REACTIONS (6)
  - AMENORRHOEA [None]
  - CAESAREAN SECTION [None]
  - DRUG EXPOSURE DURING PREGNANCY [None]
  - INAPPROPRIATE SCHEDULE OF DRUG ADMINISTRATION [None]
  - PREGNANCY ON ORAL CONTRACEPTIVE [None]
  - PREMATURE LABOUR [None]
